FAERS Safety Report 25343833 (Version 1)
Quarter: 2025Q2

REPORT INFORMATION
  Report Type: Spontaneous
  Country: TR (occurrence: TR)
  Receive Date: 20250521
  Receipt Date: 20250521
  Transmission Date: 20250716
  Serious: Yes (Congenital Anomaly)
  Sender: AIPING PHARMACEUTICAL
  Company Number: TR-AIPING-2025AILIT00061

PATIENT
  Sex: Male
  Weight: 2.9 kg

DRUGS (1)
  1. LAMOTRIGINE [Suspect]
     Active Substance: LAMOTRIGINE
     Indication: Product used for unknown indication
     Route: 064

REACTIONS (3)
  - Cryptorchism [Unknown]
  - Premature baby [Unknown]
  - Foetal exposure during pregnancy [Unknown]
